FAERS Safety Report 22000612 (Version 1)
Quarter: 2023Q1

REPORT INFORMATION
  Report Type: Spontaneous
  Country: US (occurrence: None)
  Receive Date: 20230215
  Receipt Date: 20230215
  Transmission Date: 20230417
  Serious: No
  Sender: FDA-Public Use
  Company Number: None

PATIENT
  Age: 30 Year
  Sex: Female
  Weight: 65.25 kg

DRUGS (3)
  1. METHYLPHENIDATE HYDROCHLORIDE [Suspect]
     Active Substance: METHYLPHENIDATE HYDROCHLORIDE
     Indication: Attention deficit hyperactivity disorder
     Dosage: OTHER QUANTITY : 30 TABLET(S);?FREQUENCY : DAILY;?
     Route: 048
     Dates: start: 20230211, end: 20230215
  2. lexapro (10mg) [Concomitant]
  3. n-acetyl-cysteine (1200mg) [Concomitant]

REACTIONS (6)
  - Heart rate increased [None]
  - Hyperhidrosis [None]
  - Anxiety [None]
  - Nausea [None]
  - Therapeutic product effect incomplete [None]
  - Product substitution issue [None]

NARRATIVE: CASE EVENT DATE: 20230211
